FAERS Safety Report 14392749 (Version 1)
Quarter: 2018Q1

REPORT INFORMATION
  Report Type: Spontaneous
  Country: US (occurrence: US)
  Receive Date: 20180113
  Receipt Date: 20180113
  Transmission Date: 20180509
  Serious: Yes (Disabling)
  Sender: FDA-Public Use
  Company Number: None

PATIENT
  Age: 27 Year
  Sex: Male
  Weight: 86.4 kg

DRUGS (9)
  1. DEPAKOTE ER [Suspect]
     Active Substance: DIVALPROEX SODIUM
     Indication: BIPOLAR DISORDER
     Dosage: ?          QUANTITY:1 TABLET(S);?
     Route: 048
     Dates: start: 20180111, end: 20180111
  2. ZYPREXA [Concomitant]
     Active Substance: OLANZAPINE
  3. GABAPENTIN. [Concomitant]
     Active Substance: GABAPENTIN
  4. MODAFINIL. [Concomitant]
     Active Substance: MODAFINIL
  5. NAPROXEN. [Concomitant]
     Active Substance: NAPROXEN
  6. RESTORIL [Concomitant]
     Active Substance: TEMAZEPAM
  7. MELATONIN [Concomitant]
     Active Substance: MELATONIN
  8. XANAX XR [Concomitant]
     Active Substance: ALPRAZOLAM
  9. DEPAKOTE [Concomitant]
     Active Substance: DIVALPROEX SODIUM

REACTIONS (6)
  - Abdominal pain upper [None]
  - Depression [None]
  - Feeling abnormal [None]
  - Tremor [None]
  - Product substitution issue [None]
  - Nausea [None]

NARRATIVE: CASE EVENT DATE: 20180111
